FAERS Safety Report 14082358 (Version 1)
Quarter: 2017Q4

REPORT INFORMATION
  Report Type: Spontaneous
  Country: US (occurrence: None)
  Receive Date: 20171013
  Receipt Date: 20171013
  Transmission Date: 20180321
  Serious: Yes (Other)
  Sender: FDA-Public Use
  Company Number: None

PATIENT
  Age: 88 Year
  Sex: Female
  Weight: 50.98 kg

DRUGS (8)
  1. MYLANTA [Concomitant]
     Active Substance: ALUMINUM HYDROXIDE\DIMETHICONE\MAGNESIUM HYDROXIDE
  2. MIRALAX [Concomitant]
     Active Substance: POLYETHYLENE GLYCOL 3350
  3. MULTI-VITAMINS [Concomitant]
  4. COQ10 VITAMINS [Concomitant]
  5. VALSARTAN TABLETS (GENERIC FOR DIOVAN 80MG TAB NOVA) [Suspect]
     Active Substance: VALSARTAN
     Indication: HYPERTENSION
     Route: 048
     Dates: end: 20170923
  6. SMOOTH MOVE TEA [Concomitant]
     Active Substance: SENNA LEAF
  7. SUPPOSITORIES [Concomitant]
  8. LORAZEPAM. [Concomitant]
     Active Substance: LORAZEPAM

REACTIONS (11)
  - Depression [None]
  - Crying [None]
  - Abdominal pain [None]
  - Weight decreased [None]
  - Hallucination [None]
  - Asthenia [None]
  - Dizziness [None]
  - Amnesia [None]
  - Decreased appetite [None]
  - Mood swings [None]
  - Constipation [None]

NARRATIVE: CASE EVENT DATE: 20170901
